FAERS Safety Report 5066073-0 (Version None)
Quarter: 2006Q3

REPORT INFORMATION
  Report Type: 
  Country: None (occurrence: None)
  Receive Date: 20060726
  Receipt Date: 20060717
  Transmission Date: 20061208
  Serious: Yes (Other)
  Sender: FDA-Public Use
  Company Number: 2006087545

PATIENT
  Age: 31 Year
  Sex: Male
  Weight: 70.3075 kg

DRUGS (1)
  1. ROLAIDS MULTI-SYMPTOM [Suspect]
     Indication: BOREDOM
     Dosage: 10 TABLETS ONCE, ORAL
     Route: 048
     Dates: start: 20060715, end: 20060715

REACTIONS (3)
  - HAEMATOCHEZIA [None]
  - INCORRECT DOSE ADMINISTERED [None]
  - INTENTIONAL DRUG MISUSE [None]
